FAERS Safety Report 5266400-5 (Version None)
Quarter: 2007Q1

REPORT INFORMATION
  Report Type: 
  Country: None (occurrence: None)
  Receive Date: 20070315
  Receipt Date: 20070302
  Transmission Date: 20070707
  Serious: No
  Sender: FDA-Public Use
  Company Number: US-GLAXOSMITHKLINE-A0634739A

PATIENT
  Age: 77 Year
  Sex: Male

DRUGS (5)
  1. FLOVENT [Suspect]
     Indication: EMPHYSEMA
     Dosage: 220MCG FOUR TIMES PER DAY
     Route: 055
  2. ALBUTEROL [Concomitant]
  3. IPRATROPIUM BROMIDE [Concomitant]
  4. SALINE [Concomitant]
  5. ALBUTEROL [Concomitant]

REACTIONS (2)
  - DYSPNOEA [None]
  - PHARMACEUTICAL PRODUCT COMPLAINT [None]
